FAERS Safety Report 9817043 (Version 2)
Quarter: 2014Q1

REPORT INFORMATION
  Report Type: Spontaneous
  Country: US (occurrence: US)
  Receive Date: 20140114
  Receipt Date: 20140212
  Transmission Date: 20141002
  Serious: No
  Sender: FDA-Public Use
  Company Number: US-BIOGENIDEC-2014BI000251

PATIENT
  Age: 56 Year
  Sex: Female

DRUGS (9)
  1. TECFIDERA [Suspect]
     Indication: RELAPSING-REMITTING MULTIPLE SCLEROSIS
     Route: 048
  2. TECFIDERA [Suspect]
     Indication: RELAPSING-REMITTING MULTIPLE SCLEROSIS
     Dates: start: 20130930, end: 20130930
  3. AMPYRA [Concomitant]
  4. TRIAM/HCTZ [Concomitant]
  5. OXYBUTYNIN [Concomitant]
  6. VITAMIN B PLUS [Concomitant]
  7. AVONEX [Concomitant]
     Indication: MULTIPLE SCLEROSIS
  8. TYSABRI [Concomitant]
     Indication: MULTIPLE SCLEROSIS
     Route: 042
     Dates: start: 20100623, end: 20130904
  9. TYSABRI [Concomitant]
     Indication: MULTIPLE SCLEROSIS
     Route: 042
     Dates: start: 20140128

REACTIONS (5)
  - Drug ineffective [Unknown]
  - Motor dysfunction [Unknown]
  - Feeling abnormal [Recovered/Resolved]
  - Abdominal discomfort [Recovered/Resolved]
  - Dyspepsia [Unknown]
